FAERS Safety Report 12173953 (Version 1)
Quarter: 2016Q1

REPORT INFORMATION
  Report Type: Spontaneous
  Country: US (occurrence: None)
  Receive Date: 20160311
  Receipt Date: 20160311
  Transmission Date: 20160526
  Serious: No
  Sender: FDA-Public Use
  Company Number: None

PATIENT
  Sex: Female

DRUGS (12)
  1. TASIGNA [Suspect]
     Active Substance: NILOTINIB
     Indication: CHRONIC MYELOID LEUKAEMIA
     Route: 048
     Dates: start: 20160220, end: 2016
  2. FLUCONAZOLE. [Concomitant]
     Active Substance: FLUCONAZOLE
  3. BETAMETHASONE. [Concomitant]
     Active Substance: BETAMETHASONE
  4. NAPROXEN. [Concomitant]
     Active Substance: NAPROXEN
  5. SNUCORT HC [Concomitant]
  6. GLEEVEC [Concomitant]
     Active Substance: IMATINIB MESYLATE
  7. GLUCOSAMINE [Concomitant]
     Active Substance: GLUCOSAMINE
  8. MULTI-VIT [Concomitant]
     Active Substance: VITAMINS
  9. FISH OIL [Concomitant]
     Active Substance: FISH OIL
  10. POTASSIUM [Concomitant]
     Active Substance: POTASSIUM
  11. DIURETIC [Concomitant]
     Active Substance: UNSPECIFIED INGREDIENT
  12. HYDROCO/APAP [Concomitant]
     Active Substance: ACETAMINOPHEN\HYDROCODONE

REACTIONS (1)
  - Drug ineffective [None]

NARRATIVE: CASE EVENT DATE: 2016
